FAERS Safety Report 21078008 (Version 1)
Quarter: 2022Q3

REPORT INFORMATION
  Report Type: Report from Study
  Country: US (occurrence: US)
  Receive Date: 20220713
  Receipt Date: 20220713
  Transmission Date: 20221027
  Serious: No
  Sender: FDA-Public Use
  Company Number: US-VANDA PHARMACEUTICALS, INC-2021TASUS005371

PATIENT
  Sex: Female

DRUGS (5)
  1. HETLIOZ [Suspect]
     Active Substance: TASIMELTEON
     Indication: Non-24-hour sleep-wake disorder
     Dosage: 20 MILLIGRAM, QHS. ONE EVERY NIGHT
     Route: 048
     Dates: start: 20210318, end: 20211007
  2. HETLIOZ [Suspect]
     Active Substance: TASIMELTEON
     Indication: Circadian rhythm sleep disorder
  3. TEMAZEPAM [Concomitant]
     Active Substance: TEMAZEPAM
     Indication: Insomnia
  4. ALPRAZOLAM [Concomitant]
     Active Substance: ALPRAZOLAM
     Indication: Product used for unknown indication
  5. LATUDA [Concomitant]
     Active Substance: LURASIDONE HYDROCHLORIDE
     Indication: Product used for unknown indication

REACTIONS (3)
  - Metabolic disorder [Unknown]
  - Dyspepsia [Unknown]
  - Drug ineffective [Unknown]
